FAERS Safety Report 5806656-0 (Version None)
Quarter: 2008Q3

REPORT INFORMATION
  Report Type: 
  Country: None (occurrence: None)
  Receive Date: 20080710
  Receipt Date: 20080703
  Transmission Date: 20090109
  Serious: Yes (Death, Hospitalization, Other)
  Sender: FDA-Public Use
  Company Number: US-BAXTER-2008BH004878

PATIENT
  Age: 58 Year
  Sex: Male
  Weight: 70 kg

DRUGS (20)
  1. HEPARIN SODIUM INJECTION [Suspect]
     Indication: THROMBOSIS PROPHYLAXIS
     Route: 042
     Dates: end: 20080301
  2. HEPARIN SODIUM INJECTION [Suspect]
     Indication: PROPHYLAXIS
     Route: 042
     Dates: end: 20080301
  3. HEPARIN SODIUM INJECTION [Suspect]
     Indication: INTRAVENOUS CATHETER MANAGEMENT
     Route: 042
     Dates: end: 20080301
  4. HEPARIN SODIUM INJECTION [Suspect]
     Route: 065
     Dates: start: 20080315, end: 20080315
  5. HEPARIN SODIUM INJECTION [Suspect]
     Route: 065
     Dates: start: 20080315, end: 20080315
  6. HEPARIN SODIUM INJECTION [Suspect]
     Route: 065
     Dates: start: 20080315, end: 20080315
  7. HEPARIN SODIUM INJECTION [Suspect]
     Route: 065
     Dates: start: 20080317, end: 20080317
  8. HEPARIN SODIUM INJECTION [Suspect]
     Route: 065
     Dates: start: 20080317, end: 20080317
  9. HEPARIN SODIUM INJECTION [Suspect]
     Route: 065
     Dates: start: 20080317, end: 20080317
  10. HEPARIN SODIUM INJECTION [Suspect]
     Route: 065
     Dates: start: 20080317, end: 20080317
  11. HEPARIN SODIUM INJECTION [Suspect]
     Route: 065
     Dates: start: 20080317, end: 20080317
  12. HEPARIN SODIUM INJECTION [Suspect]
     Route: 065
     Dates: start: 20080317, end: 20080317
  13. FENTANYL [Concomitant]
     Indication: ARTHRALGIA
     Dosage: DOSE UNIT:UNKNOWN
     Route: 061
     Dates: end: 20080301
  14. MIDODRINE [Concomitant]
     Indication: HYPOTENSION
     Dosage: DOSE UNIT:UNKNOWN
     Route: 065
     Dates: end: 20080301
  15. RENAL DRUGS [Concomitant]
     Indication: RENAL FAILURE
     Dosage: DOSE UNIT:UNKNOWN
     Route: 065
  16. DARVOCET-N 100 [Concomitant]
     Indication: DRUG USE FOR UNKNOWN INDICATION
     Dosage: DOSE UNIT:UNKNOWN
     Route: 065
  17. PHOSPHATE [Concomitant]
     Indication: DRUG USE FOR UNKNOWN INDICATION
     Dosage: DOSE UNIT:UNKNOWN
     Route: 065
  18. SILVADENE [Concomitant]
     Indication: OPEN WOUND
     Dosage: DOSE UNIT:UNKNOWN
     Route: 061
     Dates: start: 20080316
  19. AVELOX [Concomitant]
     Indication: DRUG USE FOR UNKNOWN INDICATION
     Route: 042
     Dates: start: 20080316
  20. PANTOPRAZOLE SODIUM [Concomitant]
     Indication: DRUG USE FOR UNKNOWN INDICATION
     Route: 048
     Dates: start: 20080314

REACTIONS (26)
  - ABDOMINAL PAIN [None]
  - ANAEMIA [None]
  - ARTERIOVENOUS FISTULA THROMBOSIS [None]
  - ARTHRALGIA [None]
  - ASTHENIA [None]
  - BLISTER [None]
  - BLOOD PRESSURE DECREASED [None]
  - DEHYDRATION [None]
  - DIARRHOEA [None]
  - DYSPHAGIA [None]
  - DYSPNOEA [None]
  - FALL [None]
  - FATIGUE [None]
  - HYPERTENSIVE NEPHROPATHY [None]
  - HYPOALBUMINAEMIA [None]
  - HYPOPHAGIA [None]
  - HYPOVOLAEMIA [None]
  - LEUKOCYTOSIS [None]
  - LOSS OF CONSCIOUSNESS [None]
  - NAUSEA [None]
  - OEDEMA PERIPHERAL [None]
  - PAIN IN EXTREMITY [None]
  - RENAL FAILURE [None]
  - VOMITING [None]
  - WEIGHT DECREASED [None]
  - WOUND SECRETION [None]
